FAERS Safety Report 10996920 (Version 1)
Quarter: 2015Q1

REPORT INFORMATION
  Report Type: Spontaneous
  Country: US (occurrence: None)
  Receive Date: 20150330
  Receipt Date: 20150330
  Transmission Date: 20150721
  Serious: Yes (Other)
  Sender: FDA-Public Use
  Company Number: 2014TUS004799

PATIENT
  Age: 66 Year
  Sex: Female
  Weight: 77.1 kg

DRUGS (9)
  1. DEXILANT [Suspect]
     Active Substance: DEXLANSOPRAZOLE
     Indication: BARRETT^S OESOPHAGUS
     Route: 048
     Dates: start: 20140301
  2. XANAX [Concomitant]
     Active Substance: ALPRAZOLAM
  3. MENS ROGAINE EXTRA STRENGTH [Concomitant]
     Active Substance: MINOXIDIL
  4. SOVALDI [Concomitant]
     Active Substance: SOFOSBUVIR
  5. DEXILANT [Suspect]
     Active Substance: DEXLANSOPRAZOLE
     Indication: GASTROOESOPHAGEAL REFLUX DISEASE
     Route: 048
     Dates: start: 20140301
  6. VITAMIN K (PHYTOMENADIONE) [Concomitant]
  7. RIBAVIRIN. [Concomitant]
     Active Substance: RIBAVIRIN
  8. CALTRATE WITH D (CALCIUM CARBONATE, COLECALCIFEROL) [Concomitant]
  9. MAGNESIUM [Concomitant]
     Active Substance: MAGNESIUM

REACTIONS (13)
  - Hepatitis C [None]
  - Pain in jaw [None]
  - Myalgia [None]
  - Depression [None]
  - Trigger finger [None]
  - Peripheral swelling [None]
  - Dehydration [None]
  - Arthralgia [None]
  - Hypertension [None]
  - Musculoskeletal stiffness [None]
  - Oropharyngeal pain [None]
  - Upper-airway cough syndrome [None]
  - Bursitis [None]

NARRATIVE: CASE EVENT DATE: 20140313
